FAERS Safety Report 6746714-X (Version None)
Quarter: 2010Q2

REPORT INFORMATION
  Report Type: 
  Country: None (occurrence: None)
  Receive Date: 20100528
  Receipt Date: 20090429
  Transmission Date: 20101027
  Serious: No
  Sender: FDA-Public Use
  Company Number: A0781294A

PATIENT
  Age: 73 Year
  Sex: Female

DRUGS (2)
  1. VENTOLIN [Suspect]
     Indication: ASTHMA
     Dosage: 90MCG TWICE PER DAY
     Route: 055
     Dates: start: 20090201
  2. HCTZ [Concomitant]

REACTIONS (1)
  - RASH [None]
